FAERS Safety Report 25686849 (Version 2)
Quarter: 2025Q4

REPORT INFORMATION
  Report Type: Spontaneous
  Country: EU (occurrence: EU)
  Receive Date: 20250816
  Receipt Date: 20251013
  Transmission Date: 20260117
  Serious: Yes (Other)
  Sender: AUROBINDO
  Company Number: EU-JNJFOC-20250738313

PATIENT
  Age: 63 Year
  Sex: Female

DRUGS (7)
  1. LENALIDOMIDE [Suspect]
     Active Substance: LENALIDOMIDE
     Indication: Product used for unknown indication
     Dosage: UNK (FOR 2 YEARS)
     Route: 065
  2. BORTEZOMIB [Suspect]
     Active Substance: BORTEZOMIB
     Indication: Plasma cell myeloma refractory
     Dosage: UNK (RECEIVED 6 CYCLES)
     Route: 065
  3. BORTEZOMIB [Suspect]
     Active Substance: BORTEZOMIB
     Dosage: UNK (2 DOSES)
     Route: 065
  4. CYCLOPHOSPHAMIDE [Suspect]
     Active Substance: CYCLOPHOSPHAMIDE
     Indication: Plasma cell myeloma refractory
     Dosage: UNK (RECEIVED 6 CYCLES)
     Route: 065
  5. DEXAMETHASONE [Suspect]
     Active Substance: DEXAMETHASONE
     Indication: Plasma cell myeloma refractory
     Dosage: UNK (RECEIVED 6 CYCLES)
     Route: 065
  6. DEXAMETHASONE [Suspect]
     Active Substance: DEXAMETHASONE
     Dosage: UNK (2 DOSES)
     Route: 065
  7. DECADRON (DEXAMETHASONE SODIUM PHOSPHATE) [Suspect]
     Active Substance: DEXAMETHASONE SODIUM PHOSPHATE
     Indication: Plasma cell myeloma
     Dosage: UNK
     Route: 065

REACTIONS (6)
  - Pneumonia [Unknown]
  - Infection [Unknown]
  - Upper respiratory tract infection [Unknown]
  - Urinary tract infection [Unknown]
  - Infection in an immunocompromised host [Unknown]
  - Drug ineffective [Unknown]
